FAERS Safety Report 5684195-8 (Version None)
Quarter: 2008Q1

REPORT INFORMATION
  Report Type: 
  Country: None (occurrence: None)
  Receive Date: 20080327
  Receipt Date: 20080327
  Transmission Date: 20080703
  Serious: Yes (Life-Threatening, Hospitalization, Disabling, Other)
  Sender: FDA-Public Use
  Company Number: None

PATIENT
  Sex: Male
  Weight: 66.2252 kg

DRUGS (2)
  1. PREVACID [Suspect]
     Indication: DUODENAL ULCER
     Dosage: 30MG X1 DAILY PO
     Route: 048
     Dates: start: 20020901, end: 20070113
  2. CURLIN PAIN PUMP -EXTERNAL- [Concomitant]

REACTIONS (21)
  - ABDOMINAL DISTENSION [None]
  - ANOREXIA [None]
  - BRADYCARDIA [None]
  - CONSTIPATION [None]
  - DIARRHOEA [None]
  - DRY EYE [None]
  - DRY MOUTH [None]
  - DYSPHAGIA [None]
  - ELECTROLYTE IMBALANCE [None]
  - GASTROINTESTINAL HAEMORRHAGE [None]
  - HICCUPS [None]
  - HIP FRACTURE [None]
  - HYPERTENSION [None]
  - HYPOTENSION [None]
  - INSOMNIA [None]
  - NEPHROLITHIASIS [None]
  - OESOPHAGEAL ULCER [None]
  - RENAL PAIN [None]
  - THIRST [None]
  - TREMOR [None]
  - VISION BLURRED [None]
